FAERS Safety Report 7952301-8 (Version None)
Quarter: 2011Q4

REPORT INFORMATION
  Report Type: 
  Country: None (occurrence: None)
  Receive Date: 20111201
  Receipt Date: 20111128
  Transmission Date: 20120403
  Serious: Yes (Hospitalization)
  Sender: FDA-Public Use
  Company Number: NO-PFIZER INC-2011266790

PATIENT
  Sex: Female

DRUGS (8)
  1. DIFLUCAN [Suspect]
     Indication: FUNGAL INFECTION
     Dosage: 200 MG, 2X/DAY
  2. ACETAMINOPHEN [Concomitant]
     Dosage: 500 MG, 4X/DAY
  3. FUROSEMIDE [Concomitant]
     Dosage: 60MG + 30MG DAILY
  4. TOLTERODINE TARTRATE [Concomitant]
     Dosage: 4 MG, 1X/DAY
  5. ZOPICLONE [Concomitant]
     Dosage: 5 MG, 1X/DAY
  6. METOPROLOL SUCCINATE [Concomitant]
     Dosage: 25 MG, 1X/DAY
  7. FRAGMIN [Concomitant]
     Dosage: 500 IU, 1X/DAY
     Route: 058
  8. OXYCONTIN [Concomitant]
     Dosage: 15 MG, 2X/DAY

REACTIONS (1)
  - C-REACTIVE PROTEIN INCREASED [None]
